FAERS Safety Report 8341998-9 (Version None)
Quarter: 2012Q1

REPORT INFORMATION
  Report Type: 
  Country: None (occurrence: None)
  Receive Date: 20120330
  Receipt Date: 20030729
  Transmission Date: 20120608
  Serious: Yes (Other)
  Sender: FDA-Public Use
  Company Number: PHEH2003US06772

PATIENT
  Age: 76 Year
  Sex: Female

DRUGS (14)
  1. FLUOXETINE [Concomitant]
  2. MORPHINE [Concomitant]
  3. PREMARIN [Concomitant]
  4. RANITIDINE HYDROCHLORIDE [Concomitant]
  5. LISINOPRIL [Concomitant]
  6. PERCOCET [Concomitant]
  7. ALLEGRA [Concomitant]
  8. DIPHENHIST (DIPHENHYDRAMINE HYDROCHLORIDE) [Concomitant]
  9. EXELON [Suspect]
     Indication: DEMENTIA ALZHEIMER'S TYPE
     Dosage: 6 MG, BID, ORAL
     Route: 048
     Dates: start: 20021020
  10. CARISOPRODOL (CARISOPRODOL) [Concomitant]
  11. ANTIHISTAMINES (NO INGREDIENTS/SUBSTANCES) [Concomitant]
  12. LASIX [Concomitant]
  13. ASPIRIN [Concomitant]
  14. ACETAMINOPHEN [Concomitant]

REACTIONS (2)
  - OEDEMA PERIPHERAL [None]
  - HYPERTENSION [None]
